FAERS Safety Report 4443054-9 (Version None)
Quarter: 2004Q3

REPORT INFORMATION
  Report Type: 
  Country: None (occurrence: None)
  Receive Date: 20040903
  Receipt Date: 20040601
  Transmission Date: 20050211
  Serious: Yes (Other)
  Sender: FDA-Public Use
  Company Number: 2004UW11373

PATIENT
  Age: 76 Year
  Sex: Female
  Weight: 53.978 kg

DRUGS (2)
  1. CRESTOR [Suspect]
     Indication: HYPERCHOLESTEROLAEMIA
     Dosage: 10 MG DAILY PO
     Route: 048
  2. BLOOD PRESSURE MEDICATION [Concomitant]

REACTIONS (5)
  - DIZZINESS [None]
  - DYSURIA [None]
  - FATIGUE [None]
  - MYALGIA [None]
  - NAUSEA [None]
